FAERS Safety Report 8861064 (Version 1)
Quarter: 2012Q4

REPORT INFORMATION
  Report Type: Spontaneous
  Country: CN (occurrence: None)
  Receive Date: 20121022
  Receipt Date: 20121022
  Transmission Date: 20130627
  Serious: Yes (Hospitalization, Other)
  Sender: FDA-Public Use
  Company Number: 140383

PATIENT
  Age: 26 Year
  Sex: Male

DRUGS (1)
  1. KETAMINE [Suspect]

REACTIONS (3)
  - Cystitis [None]
  - Drug abuse [None]
  - Medication error [None]
